FAERS Safety Report 17257406 (Version 1)
Quarter: 2020Q1

REPORT INFORMATION
  Report Type: Spontaneous
  Country: US (occurrence: US)
  Receive Date: 20200109
  Receipt Date: 20200109
  Transmission Date: 20200409
  Serious: Yes (Disabling)
  Sender: FDA-Public Use
  Company Number: None

PATIENT
  Age: 34 Year
  Sex: Male
  Weight: 90 kg

DRUGS (4)
  1. INVEGA [Suspect]
     Active Substance: PALIPERIDONE
  2. CLOZARIL [Suspect]
     Active Substance: CLOZAPINE
  3. SEROQUEL [Suspect]
     Active Substance: QUETIAPINE FUMARATE
  4. ZYPREXA [Suspect]
     Active Substance: OLANZAPINE

REACTIONS (8)
  - Anger [None]
  - Vomiting [None]
  - Therapeutic product effect variable [None]
  - Muscle spasms [None]
  - Asphyxia [None]
  - Dizziness [None]
  - Joint swelling [None]
  - Fall [None]
